FAERS Safety Report 23124869 (Version 2)
Quarter: 2023Q4

REPORT INFORMATION
  Report Type: Report from Study
  Country: PL (occurrence: PL)
  Receive Date: 20231030
  Receipt Date: 20231110
  Transmission Date: 20240110
  Serious: Yes (Hospitalization)
  Sender: FDA-Public Use
  Company Number: PL-PFIZER INC-2021710504

PATIENT
  Age: 34 Year
  Sex: Female
  Weight: 65 kg

DRUGS (3)
  1. RITLECITINIB [Suspect]
     Active Substance: RITLECITINIB
     Indication: Alopecia areata
     Dosage: 50 MG, ONCE DAILY
     Route: 048
     Dates: start: 20201126, end: 20210613
  2. ORLIFIQUE [Concomitant]
     Indication: Contraception
     Dosage: 1 TABLET ([ETHINYLESTRADIOL 0.020MG]/[LEVONORGESTREL 0.10MG]), ONCE DAILY
     Route: 048
     Dates: start: 2018
  3. FOLIC ACID [Concomitant]
     Active Substance: FOLIC ACID
     Indication: Pregnancy
     Dosage: 0.4 MG, 1X/DAY
     Route: 048
     Dates: start: 20210614, end: 20210719

REACTIONS (1)
  - Abortion spontaneous [Recovered/Resolved]

NARRATIVE: CASE EVENT DATE: 20210716
